FAERS Safety Report 5698407-8 (Version None)
Quarter: 2008Q2

REPORT INFORMATION
  Report Type: 
  Country: None (occurrence: None)
  Receive Date: 20080403
  Receipt Date: 20080320
  Transmission Date: 20081010
  Serious: Yes (Other)
  Sender: FDA-Public Use
  Company Number: S08-FRA-00930-01

PATIENT
  Age: 62 Year
  Sex: Male

DRUGS (4)
  1. ESCITALOPRAM [Suspect]
     Indication: DEPRESSION
     Dosage: 10 MG QD PO
     Route: 048
     Dates: start: 20071220, end: 20080220
  2. AMARYL [Suspect]
     Dates: start: 20071220, end: 20080220
  3. METOPROLOL TARTRATE [Suspect]
     Dosage: 25 MG DAILY
  4. OMEPRAZOLE [Concomitant]

REACTIONS (2)
  - LOSS OF CONSCIOUSNESS [None]
  - ROAD TRAFFIC ACCIDENT [None]
